FAERS Safety Report 24683554 (Version 1)
Quarter: 2024Q4

REPORT INFORMATION
  Report Type: Spontaneous
  Country: US (occurrence: US)
  Receive Date: 20241201
  Receipt Date: 20241201
  Transmission Date: 20250115
  Serious: Yes (Other)
  Sender: INSUD PHARMA
  Company Number: US-INSUD PHARMA-2411US09119

PATIENT

DRUGS (1)
  1. MIDODRINE HYDROCHLORIDE [Suspect]
     Active Substance: MIDODRINE HYDROCHLORIDE
     Indication: Hypotension
     Dosage: 10 MILLIGRAM, TID
     Route: 065

REACTIONS (4)
  - Ischaemic skin ulcer [Unknown]
  - Hypoaesthesia [Unknown]
  - Skin discolouration [Unknown]
  - Gangrene [Unknown]
